FAERS Safety Report 7302946-3 (Version None)
Quarter: 2011Q1

REPORT INFORMATION
  Report Type: 
  Country: None (occurrence: None)
  Receive Date: 20110218
  Receipt Date: 20110203
  Transmission Date: 20110831
  Serious: Yes (Other)
  Sender: FDA-Public Use
  Company Number: DE-ACTELION-A-US2011-45309

PATIENT

DRUGS (14)
  1. FUROSEMIDE [Concomitant]
  2. SPIRONOLACTONE [Concomitant]
  3. NOVORAPID [Concomitant]
  4. COTRIM [Concomitant]
  5. SILDENAFIL CITRATE [Concomitant]
  6. PREDNISONE [Concomitant]
  7. TRACLEER [Concomitant]
     Indication: PULMONARY ARTERIAL HYPERTENSION
     Route: 048
  8. OMEPRAZOLE [Concomitant]
  9. VENTAVIS [Suspect]
     Indication: PULMONARY ARTERIAL HYPERTENSION
     Dosage: UNK
     Route: 055
  10. ZELITREX [Concomitant]
  11. SERETIDE [Concomitant]
  12. INSULATARD [Concomitant]
  13. FLUCONAZOLE [Concomitant]
  14. CHLORTHALIDONE [Concomitant]

REACTIONS (3)
  - EYE SWELLING [None]
  - EYE HAEMORRHAGE [None]
  - OCULAR HYPERAEMIA [None]
